FAERS Safety Report 4803647-3 (Version None)
Quarter: 2005Q4

REPORT INFORMATION
  Report Type: 
  Country: None (occurrence: None)
  Receive Date: 20051014
  Receipt Date: 20051005
  Transmission Date: 20060501
  Serious: Yes (Hospitalization)
  Sender: FDA-Public Use
  Company Number: 200513417GDS

PATIENT
  Age: 44 Year
  Sex: Male

DRUGS (4)
  1. VIVANZA (VARDENAFIL) [Suspect]
     Indication: ERECTILE DYSFUNCTION
     Dosage: ORAL
     Route: 048
  2. LOPINAVIR W/ RITONAVIR [Suspect]
     Indication: HIV INFECTION
  3. LOPINAVIR W/RITONAVIR [Concomitant]
  4. LAMIVUDINE + ZIDOVUDINE [Concomitant]

REACTIONS (2)
  - DIABETES MELLITUS NON-INSULIN-DEPENDENT [None]
  - HEPATOTOXICITY [None]
